FAERS Safety Report 5545425-6 (Version None)
Quarter: 2007Q4

REPORT INFORMATION
  Report Type: 
  Country: None (occurrence: None)
  Receive Date: 20071211
  Receipt Date: 20071203
  Transmission Date: 20080405
  Serious: Yes (Hospitalization)
  Sender: FDA-Public Use
  Company Number: US-BAYER-200715296NA

PATIENT
  Age: 53 Year
  Sex: Male

DRUGS (10)
  1. MAGNEVIST [Suspect]
     Indication: NUCLEAR MAGNETIC RESONANCE IMAGING
     Dosage: TOTAL DAILY DOSE: 19.4 ML
     Route: 042
     Dates: end: 20071023
  2. HUMIRA [Concomitant]
     Route: 058
     Dates: start: 20070829
  3. METHOTREXATE [Concomitant]
     Route: 048
     Dates: start: 20060701
  4. FOLIC ACID [Concomitant]
     Route: 048
     Dates: start: 20060701
  5. ASCORBIC ACID [Concomitant]
     Route: 048
  6. VITAMIN CAP [Concomitant]
     Route: 048
  7. ADVIL LIQUI-GELS [Concomitant]
     Route: 048
  8. IBUPROFEN [Concomitant]
     Route: 048
     Dates: start: 20060425
  9. CALCIUM WITH VITAMIN D [Concomitant]
     Route: 048
     Dates: start: 20071020
  10. AUGMENTIN [Concomitant]
     Indication: THROMBOPHLEBITIS
     Route: 048
     Dates: start: 20071001, end: 20071101

REACTIONS (3)
  - ARTHRITIS BACTERIAL [None]
  - JOINT SWELLING [None]
  - THROMBOPHLEBITIS [None]
